FAERS Safety Report 10040662 (Version 1)
Quarter: 2014Q1

REPORT INFORMATION
  Report Type: Spontaneous
  Country: US (occurrence: None)
  Receive Date: 20140326
  Receipt Date: 20140326
  Transmission Date: 20141002
  Serious: Yes (Other)
  Sender: FDA-Public Use
  Company Number: None

PATIENT
  Sex: Female
  Weight: 78.02 kg

DRUGS (1)
  1. REVLIMID [Suspect]
     Indication: PLASMA CELL MYELOMA
     Dosage: UNKNOWN, 1 CAP BY MOUTH EVERY DAY FOR 5, ONCE DAILY, TAKEN BY MOUTH
     Route: 048

REACTIONS (7)
  - Hypoacusis [None]
  - Lactose intolerance [None]
  - Diarrhoea [None]
  - Pyrexia [None]
  - Alopecia [None]
  - Loss of consciousness [None]
  - Memory impairment [None]
